FAERS Safety Report 18899066 (Version 4)
Quarter: 2022Q1

REPORT INFORMATION
  Report Type: Report from Study
  Country: US (occurrence: US)
  Receive Date: 20210216
  Receipt Date: 20220128
  Transmission Date: 20220423
  Serious: Yes (Life-Threatening, Other)
  Sender: FDA-Public Use
  Company Number: NVSC2021US030450

PATIENT
  Sex: Female

DRUGS (1)
  1. DEFEROXAMINE [Suspect]
     Active Substance: DEFEROXAMINE MESYLATE
     Indication: Product used for unknown indication
     Dosage: UNK
     Route: 065

REACTIONS (15)
  - Thalassaemia [Unknown]
  - Deafness [Unknown]
  - Drug hypersensitivity [Unknown]
  - Chest pain [Unknown]
  - Palpitations [Unknown]
  - Mass [Unknown]
  - Urticaria [Unknown]
  - Dyspnoea [Unknown]
  - Pain [Unknown]
  - Iron overload [Unknown]
  - Blood iron increased [Unknown]
  - Adverse reaction [Unknown]
  - Tinnitus [Unknown]
  - Infusion site haemorrhage [Unknown]
  - Drug ineffective [Unknown]
